FAERS Safety Report 5512177-5 (Version None)
Quarter: 2007Q4

REPORT INFORMATION
  Report Type: 
  Country: None (occurrence: None)
  Receive Date: 20071112
  Receipt Date: 20071102
  Transmission Date: 20080405
  Serious: Yes (Other)
  Sender: FDA-Public Use
  Company Number: PHEH2007US14229

PATIENT
  Age: 74 Year
  Sex: Female
  Weight: 41.723 kg

DRUGS (13)
  1. FERROUS SULFATE TAB [Concomitant]
     Dosage: 325 MG M-W-F
  2. POTASSIUM CHLORIDE [Concomitant]
     Dosage: 20 MEQ, UNK
  3. NIFEDIPINE [Concomitant]
     Dosage: 30 MG, QD
  4. TARCEVA [Concomitant]
     Dosage: 150 MG, QD
  5. MULTIVITAMINS AND IRON [Concomitant]
  6. CALCIUM [Concomitant]
  7. MEGACE [Concomitant]
  8. AUGMENTIN /UNK/ [Concomitant]
     Dosage: ON SUNDAYS
  9. CARBOPLATIN W/GEMCITABINE HYDROCHLORIDE [Concomitant]
     Indication: LUNG NEOPLASM MALIGNANT
     Dates: start: 20050523, end: 20050726
  10. ZOMETA [Suspect]
     Indication: METASTASES TO BONE
     Dosage: 3.5 MG MONTHLY
     Dates: start: 20050531, end: 20070726
  11. PERCOCET [Concomitant]
     Indication: PAIN
     Dosage: 5/325 MG Q6H PRN
  12. IMODIUM [Concomitant]
     Indication: DIARRHOEA
     Dosage: UNK, PRN
  13. ERLOTINIB [Concomitant]
     Dosage: 150 MG QD
     Dates: start: 20050909

REACTIONS (21)
  - ACTINOMYCOSIS [None]
  - ANAEMIA [None]
  - BIOPSY BONE ABNORMAL [None]
  - BONE OPERATION [None]
  - BREAST CYST [None]
  - DIARRHOEA [None]
  - DIVERTICULUM [None]
  - DRY MOUTH [None]
  - DRY SKIN [None]
  - DYSGEUSIA [None]
  - FATIGUE [None]
  - HAEMATOCRIT DECREASED [None]
  - HAEMOGLOBIN DECREASED [None]
  - INFLAMMATION [None]
  - NEPHROSCLEROSIS [None]
  - OSTEONECROSIS [None]
  - OSTEOSCLEROSIS [None]
  - RENAL FAILURE CHRONIC [None]
  - SINUSITIS [None]
  - TOOTH EXTRACTION [None]
  - TOOTHACHE [None]
